FAERS Safety Report 15964961 (Version 1)
Quarter: 2019Q1

REPORT INFORMATION
  Report Type: Report from Study
  Country: JP (occurrence: JP)
  Receive Date: 20190215
  Receipt Date: 20190215
  Transmission Date: 20190418
  Serious: Yes (Other)
  Sender: FDA-Public Use
  Company Number: JP-ACCORD-106963

PATIENT

DRUGS (2)
  1. IRINOTECAN [Suspect]
     Active Substance: IRINOTECAN
     Indication: UTERINE CANCER
     Dosage: 70 MG/M2 INTRAVENOUSLY ON DAY 1 AND 8
     Route: 042
  2. CISPLATIN. [Suspect]
     Active Substance: CISPLATIN
     Indication: UTERINE CANCER
     Dosage: 70 MG/M2 INTRA-ARTERIALLY
     Route: 013

REACTIONS (1)
  - Weight decreased [Unknown]
